FAERS Safety Report 7013383-3 (Version None)
Quarter: 2010Q3

REPORT INFORMATION
  Report Type: 
  Country: None (occurrence: None)
  Receive Date: 20100924
  Receipt Date: 20100923
  Transmission Date: 20110219
  Serious: Yes (Death)
  Sender: FDA-Public Use
  Company Number: DE-EISAI INC.-E2020-07045-CLI-DE

PATIENT
  Sex: Female
  Weight: 58 kg

DRUGS (10)
  1. ARICEPT [Suspect]
     Route: 048
     Dates: start: 20091028, end: 20091110
  2. ARICEPT [Suspect]
     Route: 048
     Dates: start: 20091111, end: 20100101
  3. DOXEPIN HCL [Concomitant]
     Route: 048
     Dates: start: 20080801
  4. RISPERDON [Concomitant]
     Dates: start: 20080801
  5. DIURETICS [Concomitant]
  6. ANTIHYPERTENSIVES [Concomitant]
  7. ASPIRIN [Concomitant]
     Dosage: 100 MG
  8. OMEPRAZOLE [Concomitant]
     Dosage: 20 MG
  9. MIRTAZAPIN [Concomitant]
     Dosage: 15 MG
  10. VENLAFAXIN [Concomitant]
     Dosage: 112.5 MG

REACTIONS (1)
  - CEREBROVASCULAR ACCIDENT [None]
